FAERS Safety Report 20942940 (Version 3)
Quarter: 2023Q1

REPORT INFORMATION
  Report Type: Report from Study
  Country: US (occurrence: US)
  Receive Date: 20220610
  Receipt Date: 20230211
  Transmission Date: 20230418
  Serious: No
  Sender: FDA-Public Use
  Company Number: US-NOVARTISTESTPH-NVSC2022US133609

PATIENT
  Sex: Female

DRUGS (2)
  1. COSENTYX [Suspect]
     Active Substance: SECUKINUMAB
     Indication: Psoriasis
     Dosage: 300 MG, QW (QW FOR 5 WEEKS THEN QMO)
     Route: 058
     Dates: start: 20220506
  2. COSENTYX [Suspect]
     Active Substance: SECUKINUMAB
     Indication: Psoriatic arthropathy

REACTIONS (2)
  - Psoriasis [Not Recovered/Not Resolved]
  - Pruritus [Unknown]
